FAERS Safety Report 11042986 (Version 1)
Quarter: 2015Q2

REPORT INFORMATION
  Report Type: Spontaneous
  Country: FR (occurrence: FR)
  Receive Date: 20150417
  Receipt Date: 20150417
  Transmission Date: 20150821
  Serious: Yes (Hospitalization)
  Sender: FDA-Public Use
  Company Number: FR-ROCHE-1563392

PATIENT
  Age: 73 Year
  Sex: Female

DRUGS (7)
  1. CORTANCYL [Concomitant]
     Active Substance: PREDNISONE
     Route: 048
  2. CELLCEPT [Concomitant]
     Active Substance: MYCOPHENOLATE MOFETIL\MYCOPHENOLATE MOFETIL HYDROCHLORIDE
     Route: 065
  3. BACTRIM [Suspect]
     Active Substance: SULFAMETHOXAZOLE\TRIMETHOPRIM
     Indication: ACUTE RESPIRATORY FAILURE
     Route: 041
     Dates: start: 20150304, end: 20150311
  4. CYMEVENE [Suspect]
     Active Substance: GANCICLOVIR
     Indication: ACUTE RESPIRATORY FAILURE
     Route: 041
     Dates: start: 20150304, end: 20150308
  5. PROGRAF [Concomitant]
     Active Substance: TACROLIMUS\TACROLIMUS ANHYDROUS
     Route: 048
     Dates: end: 20150312
  6. TAZOCILLINE [Concomitant]
     Active Substance: PIPERACILLIN SODIUM\TAZOBACTAM SODIUM
     Route: 041
     Dates: start: 20150304
  7. CIFLOX (FRANCE) [Suspect]
     Active Substance: CIPROFLOXACIN
     Indication: ACUTE RESPIRATORY FAILURE
     Dosage: 400 MG/200 ML
     Route: 041
     Dates: start: 20150304, end: 20150308

REACTIONS (2)
  - Leukopenia [Recovered/Resolved]
  - Lymphopenia [Recovered/Resolved]

NARRATIVE: CASE EVENT DATE: 20150311
